FAERS Safety Report 9565415 (Version 1)
Quarter: 2013Q3

REPORT INFORMATION
  Report Type: Spontaneous
  Country: FR (occurrence: FR)
  Receive Date: 20130930
  Receipt Date: 20130930
  Transmission Date: 20140515
  Serious: Yes (Death, Hospitalization)
  Sender: FDA-Public Use
  Company Number: FR-PFIZER INC-2013274562

PATIENT
  Age: 68 Year
  Sex: Male

DRUGS (13)
  1. VANCOMYCINE [Suspect]
     Dosage: 2 G PER DAY
     Dates: start: 20130723, end: 20130801
  2. TAZOCILLINE [Suspect]
     Dosage: 4 G, 3X/DAY
     Dates: start: 20130723, end: 20130802
  3. COAPROVEL [Concomitant]
     Dosage: UNK
     Dates: end: 20130722
  4. KARDEGIC [Concomitant]
     Dosage: 75 MG PER DAY
  5. ZYLORIC [Concomitant]
     Dosage: 200 MG PER DAY
  6. RUBOZINC [Concomitant]
     Dosage: 15 MG, 2X/DAY
     Dates: end: 20130801
  7. INEXIUM [Concomitant]
     Dosage: 40 MG PER DAY
  8. SPECIAFOLDINE [Concomitant]
     Dosage: 5 MG, 3X/DAY
  9. LOVENOX [Concomitant]
     Dosage: UNK
     Dates: end: 20130802
  10. TEMERIT [Concomitant]
     Dosage: 5 MG PER DAY
  11. SERESTA [Concomitant]
     Dosage: 10 MG, 3X/DAY
  12. AUGMENTIN [Concomitant]
     Dosage: 1 G, 3X/DAY
     Dates: start: 20130715, end: 20130723
  13. FUNGIZONE [Concomitant]
     Dosage: UNK
     Route: 048
     Dates: start: 20130723, end: 20130812

REACTIONS (2)
  - Renal failure acute [Fatal]
  - Thrombocytopenia [Recovered/Resolved]
